FAERS Safety Report 21247290 (Version 12)
Quarter: 2023Q2

REPORT INFORMATION
  Report Type: Report from Study
  Country: US (occurrence: US)
  Receive Date: 20220824
  Receipt Date: 20230419
  Transmission Date: 20230722
  Serious: Yes (Hospitalization, Other)
  Sender: FDA-Public Use
  Company Number: US-NOVARTISPH-NVSC2022US188647

PATIENT
  Age: 15 Year
  Sex: Female
  Weight: 52.608 kg

DRUGS (39)
  1. TREPROSTINIL [Suspect]
     Active Substance: TREPROSTINIL
     Indication: Pulmonary arterial hypertension
     Dosage: 110 NG/KG/MIN, CONT (CONCENTRATION: 1 MG/ML)
     Route: 042
     Dates: start: 20220808
  2. TREPROSTINIL [Suspect]
     Active Substance: TREPROSTINIL
     Dosage: 110 NG/KG/MIN, CONT (CONCENTRATION: 1 MG/ML)
     Route: 042
     Dates: start: 20220808
  3. TREPROSTINIL [Suspect]
     Active Substance: TREPROSTINIL
     Dosage: 110 NG/KG/MIN, CONT (CONCENTRATION: 1 MG/ML)
     Route: 042
  4. TREPROSTINIL [Suspect]
     Active Substance: TREPROSTINIL
     Dosage: 110 NG/KG/MIN, CONT (CONCENTRATION: 1 MG/ML)
     Route: 042
  5. TREPROSTINIL [Suspect]
     Active Substance: TREPROSTINIL
     Dosage: 110 NG/KG/MIN, CONT (CONCENTRATION: 10 MG/ML)
     Route: 042
  6. OPSUMIT [Concomitant]
     Active Substance: MACITENTAN
     Indication: Pulmonary arterial hypertension
     Dosage: UNK
     Route: 065
  7. ADCIRCA [Concomitant]
     Active Substance: TADALAFIL
     Indication: Pulmonary arterial hypertension
     Dosage: UNK
     Route: 065
  8. ELIQUIS [Concomitant]
     Active Substance: APIXABAN
     Indication: Pulmonary arterial hypertension
     Dosage: UNK
     Route: 065
  9. REMODULIN [Concomitant]
     Active Substance: TREPROSTINIL
     Indication: Pulmonary arterial hypertension
     Dosage: 116 NG/KG/MIN, CONT (DCW 58 KG: RATE:32 ML/HR, CONC. 300,000 NG/ML)
     Route: 042
  10. REMODULIN [Concomitant]
     Active Substance: TREPROSTINIL
     Dosage: 3 NG/KG/MIN, QW
     Route: 042
  11. REMODULIN [Concomitant]
     Active Substance: TREPROSTINIL
     Dosage: 113 NG/KG/MIN, CONT (DCW 58KG:RATE 32 ML/HR, CONC. 300,000NG/ML)
     Route: 017
  12. ALBUTEROL [Concomitant]
     Active Substance: ALBUTEROL
     Indication: Product used for unknown indication
     Dosage: UNK
  13. APIXABAN [Concomitant]
     Active Substance: APIXABAN
     Indication: Product used for unknown indication
     Dosage: 1 DOSAGE FORM, Q12H
     Route: 048
     Dates: start: 20220323, end: 20220926
  14. ZOLADEX [Concomitant]
     Active Substance: GOSERELIN ACETATE
     Indication: Product used for unknown indication
     Dosage: UNK
     Route: 065
  15. ACETAMINOPHEN [Concomitant]
     Active Substance: ACETAMINOPHEN
     Indication: Pain
     Dosage: 325 MG
     Route: 048
  16. ACETAMINOPHEN [Concomitant]
     Active Substance: ACETAMINOPHEN
     Indication: Pyrexia
  17. ACETAMINOPHEN [Concomitant]
     Active Substance: ACETAMINOPHEN
     Indication: Headache
  18. ADVAIR HFA [Concomitant]
     Active Substance: FLUTICASONE PROPIONATE\SALMETEROL XINAFOATE
     Indication: Product used for unknown indication
     Dosage: 2 DOSAGE FORM, BID
     Dates: start: 20220416
  19. ADVAIR HFA [Concomitant]
     Active Substance: FLUTICASONE PROPIONATE\SALMETEROL XINAFOATE
     Dosage: UNK (230-21MCG/ ACUTATION INHALER)
  20. ALBUTEROL SULFATE [Concomitant]
     Active Substance: ALBUTEROL SULFATE
     Indication: Wheezing
     Dosage: 4 DOSAGE FORM, Q4H
     Route: 048
     Dates: start: 20220106
  21. ALBUTEROL SULFATE [Concomitant]
     Active Substance: ALBUTEROL SULFATE
     Dosage: UNK (90 MCG/ ACUTATION INHALER)
     Route: 065
  22. AMOXICILLIN [Concomitant]
     Active Substance: AMOXICILLIN
     Indication: Product used for unknown indication
     Dosage: 4 DOSAGE FORM, QD
     Route: 048
     Dates: start: 20200929
  23. BIOTIN [Concomitant]
     Active Substance: BIOTIN
     Indication: Product used for unknown indication
     Dosage: 5000 UG, QD
     Route: 048
  24. BUPROPION HYDROCHLORIDE XL [Concomitant]
     Active Substance: BUPROPION HYDROCHLORIDE
     Indication: Depression
     Dosage: 150 MG, QD (24 HR)
     Route: 065
  25. BUPROPION HYDROCHLORIDE XL [Concomitant]
     Active Substance: BUPROPION HYDROCHLORIDE
     Dosage: 300 MG, QD
     Route: 048
  26. CAFFEINE [Concomitant]
     Active Substance: CAFFEINE
     Indication: Migraine
     Dosage: 1 DOSAGE FORM, QD (UPTO 20 DOSES)
     Route: 048
     Dates: start: 20210413
  27. VITAMIN D3 [Concomitant]
     Active Substance: CHOLECALCIFEROL
     Indication: Product used for unknown indication
     Dosage: 1000 UNITS, QD
     Route: 048
     Dates: start: 20220613
  28. EPINEPHRINE [Concomitant]
     Active Substance: EPINEPHRINE
     Indication: Anaphylactic reaction
     Dosage: 0.3 ML
     Route: 030
     Dates: start: 20220421
  29. IFEREX [Concomitant]
     Indication: Product used for unknown indication
     Dosage: 3 DOSAGE FORM, QD
     Route: 048
     Dates: start: 20220722
  30. LACTOBACILLUS ACIDOPHILUS [Concomitant]
     Active Substance: LACTOBACILLUS ACIDOPHILUS
     Indication: Product used for unknown indication
     Dosage: 1 DOSAGE FORM, QD
     Route: 048
     Dates: start: 20210118
  31. LACTOBACILLUS ACIDOPHILUS [Concomitant]
     Active Substance: LACTOBACILLUS ACIDOPHILUS
     Dosage: UNK (10 BILLION CELL CAPSULE)
     Route: 065
  32. MACITENTAN [Concomitant]
     Active Substance: MACITENTAN
     Indication: Product used for unknown indication
     Dosage: 10 MG, QD
     Route: 048
     Dates: start: 20210930, end: 20220831
  33. ONDANSETRON [Concomitant]
     Active Substance: ONDANSETRON
     Indication: Nausea
     Dosage: 1 DOSAGE FORM, Q8H
     Route: 048
     Dates: start: 20210413
  34. ONDANSETRON [Concomitant]
     Active Substance: ONDANSETRON
     Indication: Vomiting
  35. TADALAFIL [Concomitant]
     Active Substance: TADALAFIL
     Indication: Product used for unknown indication
     Dosage: 2 DOSAGE FORM, QD
     Route: 048
     Dates: start: 20220413
  36. MILRINONE [Concomitant]
     Active Substance: MILRINONE
     Indication: Pulmonary arterial hypertension
     Dosage: UNK
     Route: 065
     Dates: start: 20220715
  37. XOLAIR [Concomitant]
     Active Substance: OMALIZUMAB
     Indication: Asthma
     Dosage: 300 MG, BIW
     Route: 058
     Dates: start: 20220415
  38. XOLAIR [Concomitant]
     Active Substance: OMALIZUMAB
     Dosage: UNK UNK, BIW
     Route: 065
  39. XOLAIR [Concomitant]
     Active Substance: OMALIZUMAB
     Dosage: 300 MG BIW (EVERY 14 DAYS)
     Route: 058
     Dates: start: 20220803

REACTIONS (6)
  - Hypothyroidism [Recovered/Resolved]
  - Weight decreased [Recovering/Resolving]
  - Hyperthyroidism [Unknown]
  - Thrombocytopenia [Not Recovered/Not Resolved]
  - Pulmonary hypertension [Unknown]
  - Product availability issue [Unknown]

NARRATIVE: CASE EVENT DATE: 20220815
